FAERS Safety Report 5156153-3 (Version None)
Quarter: 2006Q4

REPORT INFORMATION
  Report Type: 
  Country: None (occurrence: None)
  Receive Date: 20061114
  Receipt Date: 20061101
  Transmission Date: 20070319
  Serious: Yes (Death)
  Sender: FDA-Public Use
  Company Number: HQWYE290203NOV06

PATIENT
  Age: 66 Year

DRUGS (3)
  1. CORDARONE [Suspect]
     Dosage: UNSPECIFIED
  2. ALLOPURINOL [Suspect]
     Dosage: UNSPECIFIED
  3. TORSEMIDE [Suspect]
     Dosage: UNSPECIFIED

REACTIONS (1)
  - MEDICATION ERROR [None]
